FAERS Safety Report 21915409 (Version 2)
Quarter: 2023Q2

REPORT INFORMATION
  Report Type: Report from Study
  Country: US (occurrence: None)
  Receive Date: 20230126
  Receipt Date: 20230414
  Transmission Date: 20230721
  Serious: Yes (Other)
  Sender: FDA-Public Use
  Company Number: US-Eisai Medical Research-EC-2023-132620

PATIENT
  Age: 70 Year
  Sex: Female
  Weight: 64.4 kg

DRUGS (2)
  1. LENVATINIB [Suspect]
     Active Substance: LENVATINIB
     Indication: Ovarian cancer stage IV
     Route: 048
     Dates: start: 20221129, end: 20221219
  2. PEMBROLIZUMAB [Suspect]
     Active Substance: PEMBROLIZUMAB
     Indication: Ovarian cancer stage IV
     Route: 041
     Dates: start: 20221108, end: 20221129

REACTIONS (1)
  - Focal segmental glomerulosclerosis [Recovered/Resolved]

NARRATIVE: CASE EVENT DATE: 20230118
